FAERS Safety Report 15406403 (Version 1)
Quarter: 2018Q3

REPORT INFORMATION
  Report Type: Spontaneous
  Country: US (occurrence: US)
  Receive Date: 20180912
  Receipt Date: 20180912
  Transmission Date: 20181010
  Serious: Yes (Other)
  Sender: FDA-Public Use
  Company Number: None

PATIENT
  Age: 49 Year
  Sex: Male

DRUGS (1)
  1. HUMIRA [Suspect]
     Active Substance: ADALIMUMAB
     Indication: PSORIATIC ARTHROPATHY
     Dosage: ?          OTHER DOSE:160MG DAY 180MG ;?
     Route: 058
     Dates: start: 20180816, end: 20180830

REACTIONS (4)
  - Hypoaesthesia [None]
  - Diarrhoea [None]
  - Musculoskeletal pain [None]
  - Colitis ulcerative [None]

NARRATIVE: CASE EVENT DATE: 20180818
